FAERS Safety Report 20852901 (Version 1)
Quarter: 2022Q2

REPORT INFORMATION
  Report Type: Spontaneous
  Country: AU (occurrence: AU)
  Receive Date: 20220520
  Receipt Date: 20220520
  Transmission Date: 20220721
  Serious: Yes (Life-Threatening, Other)
  Sender: FDA-Public Use
  Company Number: AU-ASPEN-GLO2022AU002705

PATIENT

DRUGS (1)
  1. LEUKERAN [Suspect]
     Active Substance: CHLORAMBUCIL
     Indication: Chemotherapy
     Dosage: 2 MG(TAKE NINE TABS ONCE A DAY FOR 7 DAYS AS DIRECTED^TAKE HALF AN HOUR BEFORE FOOD OR 2HOURS AFTER)
     Route: 048
     Dates: start: 20220407, end: 20220506

REACTIONS (1)
  - Expired product administered [Unknown]

NARRATIVE: CASE EVENT DATE: 20220406
